FAERS Safety Report 14214922 (Version 1)
Quarter: 2017Q4

REPORT INFORMATION
  Report Type: Spontaneous
  Country: US (occurrence: US)
  Receive Date: 20171122
  Receipt Date: 20171122
  Transmission Date: 20180321
  Serious: No
  Sender: FDA-Public Use
  Company Number: US-ROCHE-1950068

PATIENT
  Sex: Female
  Weight: 95.8 kg

DRUGS (30)
  1. PROZAC [Concomitant]
     Active Substance: FLUOXETINE HYDROCHLORIDE
     Route: 048
  2. ZOFRAN [Concomitant]
     Active Substance: ONDANSETRON HYDROCHLORIDE
     Indication: NAUSEA
     Route: 048
  3. FASLODEX [Concomitant]
     Active Substance: FULVESTRANT
     Route: 030
     Dates: start: 20170502, end: 20170502
  4. SYNTHROID [Concomitant]
     Active Substance: LEVOTHYROXINE SODIUM
     Route: 048
  5. PRILOSEC [Concomitant]
     Active Substance: OMEPRAZOLE MAGNESIUM
     Route: 048
  6. KLOR-CON M10 [Concomitant]
     Active Substance: POTASSIUM CHLORIDE
     Route: 048
  7. HUMALOG [Concomitant]
     Active Substance: INSULIN LISPRO
     Dosage: 0-150: 0 UNIT, 151-200: 2 UNITS, 201-250: 4 UNITS, 251-300: 6 UNITS, 301-350: 8 UNITS, 351-400 UNITS
     Route: 065
  8. LASIX [Concomitant]
     Active Substance: FUROSEMIDE
     Route: 048
  9. ASPIRIN. [Concomitant]
     Active Substance: ASPIRIN
     Route: 065
  10. CUBICIN [Concomitant]
     Active Substance: DAPTOMYCIN
     Route: 042
  11. K-DUR [Concomitant]
     Active Substance: POTASSIUM CHLORIDE
     Route: 048
  12. HEPARIN LOCK FLUSH [Concomitant]
     Active Substance: HEPARIN SODIUM
     Dosage: 100 UNITS/ML
     Route: 042
     Dates: start: 20170502, end: 20170503
  13. HERCEPTIN [Suspect]
     Active Substance: TRASTUZUMAB
     Dosage: 100 UNITS/ML 300 UNITS
     Route: 042
     Dates: start: 20170502
  14. IMDUR [Concomitant]
     Active Substance: ISOSORBIDE MONONITRATE
     Route: 048
  15. NYSTOP [Concomitant]
     Active Substance: NYSTATIN
     Route: 061
  16. NEURONTIN [Concomitant]
     Active Substance: GABAPENTIN
     Route: 048
  17. ROXICODONE [Concomitant]
     Active Substance: OXYCODONE HYDROCHLORIDE
     Indication: PAIN
     Route: 048
  18. ERGOCALCIFEROL. [Concomitant]
     Active Substance: ERGOCALCIFEROL
     Dosage: 50000 UNIT FOR 12 WEEKS
     Route: 048
  19. SODIUM CHLORIDE. [Concomitant]
     Active Substance: SODIUM CHLORIDE
     Dosage: NEEDED FOR LINE CARE
     Route: 042
     Dates: start: 20170502, end: 20170503
  20. HERCEPTIN [Suspect]
     Active Substance: TRASTUZUMAB
     Indication: PRODUCT USED FOR UNKNOWN INDICATION
     Route: 042
     Dates: start: 20131105
  21. CIPROFLOXACIN. [Concomitant]
     Active Substance: CIPROFLOXACIN
     Route: 065
  22. TYLENOL [Concomitant]
     Active Substance: ACETAMINOPHEN
     Route: 065
  23. SODIUM CHLORIDE. [Concomitant]
     Active Substance: SODIUM CHLORIDE
     Route: 042
     Dates: start: 20170502, end: 20170502
  24. DURAGESIC [Concomitant]
     Active Substance: FENTANYL
     Route: 065
  25. IBRANCE [Concomitant]
     Active Substance: PALBOCICLIB
     Dosage: 1-21 OF EACH MONTH
     Route: 048
  26. NITROSTAT [Concomitant]
     Active Substance: NITROGLYCERIN
     Indication: CHEST PAIN
     Dosage: 1 TABLET UNDER THE TONGUE EVENRY 5 MINUTS AS NEEDED
     Route: 065
  27. GLYCOLAX [Concomitant]
     Active Substance: POLYETHYLENE GLYCOL 3350
     Route: 048
  28. SENOKOT-S [Concomitant]
     Active Substance: DOCUSATE SODIUM\SENNOSIDES
     Indication: CONSTIPATION
     Dosage: 8.6-50 MG
     Route: 048
  29. SODIUM CHLORIDE. [Concomitant]
     Active Substance: SODIUM CHLORIDE
     Dosage: NEEDED FOR LINE CARE
     Route: 042
     Dates: start: 20170502, end: 20170503
  30. FEMARA [Concomitant]
     Active Substance: LETROZOLE
     Route: 048

REACTIONS (1)
  - Diarrhoea [Unknown]
